FAERS Safety Report 18763609 (Version 1)
Quarter: 2021Q1

REPORT INFORMATION
  Report Type: Spontaneous
  Country: ES (occurrence: ES)
  Receive Date: 20210120
  Receipt Date: 20210120
  Transmission Date: 20210419
  Serious: Yes (Hospitalization)
  Sender: FDA-Public Use
  Company Number: ES-TEVA-2021-ES-1869229

PATIENT
  Age: 51 Year
  Sex: Female

DRUGS (3)
  1. FENTANILO (1543A) [Suspect]
     Active Substance: FENTANYL
     Indication: TRIGEMINAL NEURALGIA
     Dosage: 12MCG
     Route: 062
     Dates: start: 20201211, end: 20201213
  2. FENITOINA (1334A) [Interacting]
     Active Substance: PHENYTOIN
     Indication: TRIGEMINAL NEURALGIA
     Dosage: 100MG
     Route: 048
     Dates: start: 20201211, end: 20201213
  3. BACLOFENO (454A) [Interacting]
     Active Substance: BACLOFEN
     Indication: TRIGEMINAL NEURALGIA
     Dosage: 50MG
     Route: 048
     Dates: start: 20201211, end: 20201213

REACTIONS (3)
  - Somnolence [Recovered/Resolved]
  - Clonic convulsion [Recovered/Resolved]
  - Drug interaction [Unknown]

NARRATIVE: CASE EVENT DATE: 20201213
